FAERS Safety Report 9122462 (Version 1)
Quarter: 2013Q1

REPORT INFORMATION
  Report Type: Spontaneous
  Country: US (occurrence: US)
  Receive Date: 20130115
  Receipt Date: 20130115
  Transmission Date: 20140127
  Serious: Yes (Hospitalization, Other)
  Sender: FDA-Public Use
  Company Number: US-RB-048486-13

PATIENT
  Age: 31 Year
  Sex: Female

DRUGS (6)
  1. SUBOXONE TABLET [Suspect]
     Indication: PRODUCT USED FOR UNKNOWN INDICATION
     Dosage: UNKNOWN DOSING DETAILS
     Route: 065
  2. SUBOXONE FILM [Suspect]
     Indication: DRUG DEPENDENCE
     Dosage: SUBOXONE FILM; 8 MG INCREASED TO 12 MG/DAILY
     Route: 060
     Dates: start: 201205, end: 201207
  3. SUBOXONE FILM [Suspect]
     Dosage: SUBOXONE FILM; 4-8 MG/DAILY
     Route: 060
     Dates: start: 201209
  4. TRILEPTAL [Concomitant]
     Indication: ANXIETY
     Dosage: UNKNOWN DOSING DETAILS
     Route: 065
  5. TRILEPTAL [Concomitant]
     Indication: ANXIETY
     Dosage: UNKNOWN DOSING DETAILS
     Route: 065
  6. WELLBUTRIN [Concomitant]
     Indication: BIPOLAR DISORDER
     Dosage: UNKNOWN DOSING DETAILS
     Route: 065

REACTIONS (4)
  - Substance abuse [Not Recovered/Not Resolved]
  - Mania [Recovered/Resolved]
  - Wrong technique in drug usage process [Recovered/Resolved]
  - Wrong technique in drug usage process [Not Recovered/Not Resolved]
